FAERS Safety Report 9578669 (Version 2)
Quarter: 2013Q4

REPORT INFORMATION
  Report Type: Spontaneous
  Country: US (occurrence: US)
  Receive Date: 20131001
  Receipt Date: 20131001
  Transmission Date: 20140711
  Serious: No
  Sender: FDA-Public Use
  Company Number: US-AMGEN-USASP2013011065

PATIENT
  Age: 54 Year
  Sex: Female
  Weight: 117.91 kg

DRUGS (7)
  1. ENBREL [Suspect]
     Indication: PSORIASIS
     Dosage: 50 MG, 2 TIMES/WK
     Route: 058
     Dates: start: 20130122
  2. ENBREL [Suspect]
     Indication: PSORIATIC ARTHROPATHY
  3. COUMADIN                           /00014802/ [Concomitant]
     Dosage: 1 MG, UNK
  4. RANITIDINE [Concomitant]
     Dosage: 150 MG, UNK
  5. TACLONEX [Concomitant]
     Dosage: UNK
  6. ALBUTEROL                          /00139501/ [Concomitant]
     Dosage: 90 MUG, UNK
  7. IBUPROFEN [Concomitant]
     Dosage: 200 MG, UNK

REACTIONS (2)
  - Upper respiratory tract infection [Recovered/Resolved]
  - Nasopharyngitis [Unknown]
